FAERS Safety Report 10034609 (Version 1)
Quarter: 2014Q1

REPORT INFORMATION
  Report Type: Spontaneous
  Country: IT (occurrence: IT)
  Receive Date: 20140325
  Receipt Date: 20140325
  Transmission Date: 20141002
  Serious: Yes (Hospitalization)
  Sender: FDA-Public Use
  Company Number: IT-MYLANLABS-2014S1005898

PATIENT
  Age: 21 Year
  Sex: Female
  Weight: 50 kg

DRUGS (4)
  1. TRIAZOLAM [Suspect]
     Indication: INSOMNIA
     Dosage: .25 MG DAILY
     Route: 048
     Dates: start: 20100101, end: 20140307
  2. DELORAZEPAM [Suspect]
     Indication: ANXIETY
     Dosage: 1 MG DAILY
     Route: 048
     Dates: start: 20100101, end: 20140307
  3. TOLEP [Suspect]
     Indication: GRAND MAL CONVULSION
     Dosage: 600 MG DAILY
     Route: 048
     Dates: start: 20100101, end: 20140307
  4. PALIPERIDONE [Suspect]
     Indication: SCHIZOPHRENIA
     Dosage: 6 MG DAILY
     Route: 048
     Dates: start: 20100101, end: 20140307

REACTIONS (2)
  - Confusional state [Recovered/Resolved]
  - Inappropriate schedule of drug administration [Recovered/Resolved]
